FAERS Safety Report 16564829 (Version 1)
Quarter: 2019Q3

REPORT INFORMATION
  Report Type: Spontaneous
  Country: US (occurrence: US)
  Receive Date: 20190712
  Receipt Date: 20190712
  Transmission Date: 20191004
  Serious: No
  Sender: FDA-Public Use
  Company Number: US-009507513-1907USA004500

PATIENT
  Age: 28 Year
  Sex: Female

DRUGS (13)
  1. FOLLISTIM [Suspect]
     Active Substance: FOLLITROPIN
     Indication: INFERTILITY
     Dosage: STRENGHT: 300,150 INTERNATIONAL UNIT, QD
     Route: 058
     Dates: start: 20190503
  2. GANIRELIX ACETATE INJECTION [Suspect]
     Active Substance: GANIRELIX ACETATE
     Indication: INFERTILITY
     Dosage: 250 MICROGRAM, QD
     Route: 058
     Dates: start: 20190503
  3. OVIDREL [Concomitant]
     Active Substance: CHORIOGONADOTROPIN ALFA
     Dosage: UNK
     Dates: start: 20190329
  4. NOVAREL [Concomitant]
     Active Substance: CHORIOGONADOTROPIN ALFA
     Dosage: UNK
     Dates: start: 20190301
  5. DOXYCYCLINE. [Concomitant]
     Active Substance: DOXYCYCLINE
     Dosage: UNK
     Dates: start: 20190503
  6. PROGESTERONE. [Concomitant]
     Active Substance: PROGESTERONE
     Dosage: UNK
     Dates: start: 20190503
  7. IBUPROFEN. [Concomitant]
     Active Substance: IBUPROFEN
     Dosage: UNK
     Dates: start: 20190225
  8. GONADOTROPIN, CHORIONIC [Concomitant]
     Active Substance: CHORIOGONADOTROPIN ALFA
     Dosage: STRENGHT: 10000
     Dates: start: 20190503
  9. LETROZOLE. [Concomitant]
     Active Substance: LETROZOLE
     Dosage: UNK
     Dates: start: 20190503
  10. TRAMADOL HYDROCHLORIDE. [Concomitant]
     Active Substance: TRAMADOL HYDROCHLORIDE
     Dosage: UNK
     Dates: start: 20190225
  11. AMOXICILLIN. [Concomitant]
     Active Substance: AMOXICILLIN
     Dosage: UNK
     Dates: start: 20190225
  12. ENDOMETRIN [Concomitant]
     Active Substance: PROGESTERONE
     Dosage: UNK
     Dates: start: 20190301
  13. MENOPUR [Concomitant]
     Active Substance: FOLLITROPIN\LUTEINIZING HORMONE
     Dosage: UNK
     Dates: start: 20190503

REACTIONS (1)
  - Rash [Unknown]

NARRATIVE: CASE EVENT DATE: 20190701
